FAERS Safety Report 12123572 (Version 1)
Quarter: 2016Q1

REPORT INFORMATION
  Report Type: Spontaneous
  Country: US (occurrence: None)
  Receive Date: 20160226
  Receipt Date: 20160226
  Transmission Date: 20160526
  Serious: Yes (Life-Threatening, Hospitalization, Disabling)
  Sender: FDA-Public Use
  Company Number: None

PATIENT
  Age: 65 Year
  Sex: Male
  Weight: 99.79 kg

DRUGS (5)
  1. QUNOL [Concomitant]
  2. ACTOS [Suspect]
     Active Substance: PIOGLITAZONE HYDROCHLORIDE
     Indication: TYPE 2 DIABETES MELLITUS
     Route: 048
     Dates: start: 20030531, end: 20050228
  3. GLYBURIDE. [Concomitant]
     Active Substance: GLYBURIDE
  4. MAGNESIUM [Concomitant]
     Active Substance: MAGNESIUM
  5. SIMVASTATIN. [Concomitant]
     Active Substance: SIMVASTATIN

REACTIONS (1)
  - Renal cancer [None]

NARRATIVE: CASE EVENT DATE: 20150818
